FAERS Safety Report 8555663-6 (Version None)
Quarter: 2012Q3

REPORT INFORMATION
  Report Type: 
  Country: None (occurrence: None)
  Receive Date: 20120801
  Receipt Date: 20120727
  Transmission Date: 20120928
  Serious: Yes (Death, Hospitalization)
  Sender: FDA-Public Use
  Company Number: AU-AMGEN-AUSSP2012046962

PATIENT
  Age: 54 Year
  Sex: Female

DRUGS (3)
  1. CYCLOPHOSPHAMIDE [Concomitant]
     Indication: BREAST CANCER
  2. TAXOTERE [Concomitant]
     Indication: BREAST CANCER
  3. NEULASTA [Suspect]
     Indication: CHEMOTHERAPY

REACTIONS (4)
  - NEUTROPENIC SEPSIS [None]
  - LACTIC ACIDOSIS [None]
  - HYPOTENSION [None]
  - PNEUMONIA [None]
